FAERS Safety Report 8563853-1 (Version None)
Quarter: 2012Q3

REPORT INFORMATION
  Report Type: 
  Country: None (occurrence: None)
  Receive Date: 20120718
  Receipt Date: 20120709
  Transmission Date: 20120928
  Serious: Yes (Hospitalization)
  Sender: FDA-Public Use
  Company Number: 2012032853

PATIENT
  Age: 56 Year
  Sex: Male

DRUGS (1)
  1. HIZENTRA [Suspect]
     Indication: LUNG INFECTION
     Dosage: BY 70, BY 80 SUBCUTANEOUS,
     Route: 058
     Dates: start: 20120612

REACTIONS (2)
  - DRUG INEFFECTIVE FOR UNAPPROVED INDICATION [None]
  - LUNG INFECTION [None]
